FAERS Safety Report 6438957-X (Version None)
Quarter: 2009Q4

REPORT INFORMATION
  Report Type: 
  Country: None (occurrence: None)
  Receive Date: 20091111
  Receipt Date: 20091111
  Transmission Date: 20100525
  Serious: No
  Sender: FDA-Public Use
  Company Number: None

PATIENT
  Age: 6 Month
  Sex: Female
  Weight: 7.2 kg

DRUGS (1)
  1. TAMIFLU [Suspect]
     Indication: INFLUENZA
     Dosage: 75 MG TWICE DAILY PO
     Route: 048
     Dates: start: 20091107, end: 20091111

REACTIONS (2)
  - DRUG EXPOSURE VIA BREAST MILK [None]
  - ERYTHEMA MULTIFORME [None]
